FAERS Safety Report 9931815 (Version 1)
Quarter: 2014Q1

REPORT INFORMATION
  Report Type: Spontaneous
  Country: US (occurrence: US)
  Receive Date: 20140228
  Receipt Date: 20140228
  Transmission Date: 20141002
  Serious: No
  Sender: FDA-Public Use
  Company Number: US-BAYER-2014-031409

PATIENT
  Age: 51 Year
  Sex: 0

DRUGS (2)
  1. GADAVIST [Suspect]
     Dosage: UNK
     Dates: start: 20130415, end: 20130415
  2. GADAVIST [Suspect]

REACTIONS (3)
  - Pruritus [None]
  - Urticaria [None]
  - Throat irritation [None]
